FAERS Safety Report 7301058-2 (Version None)
Quarter: 2011Q1

REPORT INFORMATION
  Report Type: 
  Country: None (occurrence: None)
  Receive Date: 20110218
  Receipt Date: 20110211
  Transmission Date: 20110831
  Serious: Yes (Hospitalization)
  Sender: FDA-Public Use
  Company Number: IN-BRISTOL-MYERS SQUIBB COMPANY-15545957

PATIENT
  Age: 71 Year
  Sex: Female
  Weight: 51 kg

DRUGS (4)
  1. CARBOPLATIN [Suspect]
     Indication: OVARIAN CANCER
     Dosage: INTERMITTENT SINCE 27JAN2011
     Route: 042
  2. PACLITAXEL [Suspect]
     Indication: OVARIAN CANCER
     Dosage: INTERMITTENT SINCE 27JAN2011
  3. LOPERAMIDE HCL [Concomitant]
     Indication: DIARRHOEA
     Dates: start: 20110128
  4. AMLONG [Concomitant]
     Indication: HYPERTENSION
     Dates: start: 19860101

REACTIONS (3)
  - HYPERGLYCAEMIA [None]
  - FEBRILE NEUTROPENIA [None]
  - DIARRHOEA [None]
